FAERS Safety Report 5681517-9 (Version None)
Quarter: 2008Q1

REPORT INFORMATION
  Report Type: 
  Country: None (occurrence: None)
  Receive Date: 20080326
  Receipt Date: 20070307
  Transmission Date: 20080703
  Serious: Yes (Hospitalization, Other)
  Sender: FDA-Public Use
  Company Number: US-BAYER-US-2007-004961

PATIENT
  Age: 33 Year
  Sex: Female
  Weight: 52 kg

DRUGS (3)
  1. MIRENA [Suspect]
     Indication: CONTRACEPTION
     Route: 015
     Dates: start: 20070105, end: 20070209
  2. THYROID TAB [Concomitant]
  3. TESTOSTERONE [Concomitant]

REACTIONS (2)
  - OVARIAN CYST [None]
  - UTERINE RUPTURE [None]
